FAERS Safety Report 10286661 (Version 1)
Quarter: 2014Q3

REPORT INFORMATION
  Report Type: Spontaneous
  Country: US (occurrence: US)
  Receive Date: 20140709
  Receipt Date: 20140709
  Transmission Date: 20150326
  Serious: Yes (Other)
  Sender: FDA-Public Use
  Company Number: US-PFIZER INC-2014186242

PATIENT
  Sex: Female

DRUGS (1)
  1. LYRICA [Suspect]
     Active Substance: PREGABALIN
     Indication: FIBROMYALGIA
     Dosage: UNK

REACTIONS (7)
  - Quality of life decreased [Unknown]
  - Swelling [Unknown]
  - Cardiac disorder [Unknown]
  - Wheezing [Unknown]
  - Drug ineffective [Unknown]
  - General physical health deterioration [Unknown]
  - Dizziness [Unknown]
